FAERS Safety Report 19330667 (Version 1)
Quarter: 2021Q2

REPORT INFORMATION
  Report Type: Spontaneous
  Country: CA (occurrence: CA)
  Receive Date: 20210528
  Receipt Date: 20210528
  Transmission Date: 20210717
  Serious: Yes (Disabling)
  Sender: FDA-Public Use
  Company Number: CA-TEVA-2021-CA-1916028

PATIENT
  Age: 82 Year
  Sex: Male
  Weight: 113.5 kg

DRUGS (1)
  1. RATIO?TAMSULOSIN [Suspect]
     Active Substance: TAMSULOSIN
     Indication: BENIGN PROSTATIC HYPERPLASIA

REACTIONS (2)
  - Penile swelling [Recovered/Resolved]
  - Dyspnoea [Recovered/Resolved]
